FAERS Safety Report 9398659 (Version 1)
Quarter: 2013Q3

REPORT INFORMATION
  Report Type: Report from Study
  Country: US (occurrence: US)
  Receive Date: 20130712
  Receipt Date: 20130712
  Transmission Date: 20140515
  Serious: Yes (Hospitalization)
  Sender: FDA-Public Use
  Company Number: US-BRISTOL-MYERS SQUIBB COMPANY-16270340

PATIENT
  Age: 55 Year
  Sex: Male

DRUGS (8)
  1. SAXAGLIPTIN [Suspect]
     Indication: TYPE 2 DIABETES MELLITUS
     Dates: start: 20100824
  2. METFORMIN HCL [Suspect]
     Indication: TYPE 2 DIABETES MELLITUS
  3. NOVOLIN 70/30 [Suspect]
     Indication: TYPE 2 DIABETES MELLITUS
     Dosage: TILL 27OCT10, 40IU 27OCT2010-16MAY11, 55IU 16MAY11-ONG.
  4. ASPIRIN [Concomitant]
     Dosage: 1DF: }100MG.
  5. NITROGLYCERIN [Concomitant]
  6. METOPROLOL [Concomitant]
  7. RANITIDINE [Concomitant]
     Dates: start: 20110307
  8. LIDOCAINE [Concomitant]
     Dosage: 1 DF= 5 UNITS. OINTMENT
     Dates: start: 20110307

REACTIONS (1)
  - Angina pectoris [Recovered/Resolved]
